FAERS Safety Report 5568963-9 (Version None)
Quarter: 2007Q4

REPORT INFORMATION
  Report Type: 
  Country: None (occurrence: None)
  Receive Date: 20071220
  Receipt Date: 20070509
  Transmission Date: 20080405
  Serious: No
  Sender: FDA-Public Use
  Company Number: A0646725A

PATIENT
  Age: 79 Year
  Sex: Male

DRUGS (2)
  1. AVODART [Suspect]
     Dosage: 1CAP PER DAY
     Route: 048
     Dates: start: 20060418, end: 20070504
  2. FLOMAX [Concomitant]
     Dosage: 1TAB PER DAY
     Route: 048
     Dates: start: 20030720

REACTIONS (1)
  - DRUG INEFFECTIVE [None]
